FAERS Safety Report 4492718-X (Version None)
Quarter: 2004Q4

REPORT INFORMATION
  Report Type: 
  Country: None (occurrence: None)
  Receive Date: 20041102
  Receipt Date: 20041102
  Transmission Date: 20050328
  Serious: Yes (Hospitalization)
  Sender: FDA-Public Use
  Company Number: None

PATIENT
  Age: 54 Year
  Sex: Female

DRUGS (4)
  1. DEXAMETHASONE [Suspect]
     Indication: FACIAL PALSY
     Dates: start: 20040506, end: 20040516
  2. ACETAMINOPHE [Concomitant]
  3. ALPRAZOLAM [Concomitant]
  4. OXYCODONE HCL [Concomitant]

REACTIONS (3)
  - ANXIETY [None]
  - NAUSEA [None]
  - VOMITING [None]
